FAERS Safety Report 4994298-9 (Version None)
Quarter: 2006Q2

REPORT INFORMATION
  Report Type: 
  Country: None (occurrence: None)
  Receive Date: 20060503
  Receipt Date: 20060420
  Transmission Date: 20061013
  Serious: Yes (Hospitalization, Other)
  Sender: FDA-Public Use
  Company Number: 2006028026

PATIENT
  Age: 58 Year
  Sex: Male
  Weight: 100 kg

DRUGS (1)
  1. CAVERJECT [Suspect]
     Indication: ERECTILE DYSFUNCTION
     Dosage: 20 MCG, AS NECESSARY, PARENTERAL
     Route: 051
     Dates: start: 20000823

REACTIONS (6)
  - DEVICE BREAKAGE [None]
  - FOREIGN BODY TRAUMA [None]
  - INJURY [None]
  - PENILE HAEMORRHAGE [None]
  - PENIS DISORDER [None]
  - PROCEDURAL COMPLICATION [None]
